FAERS Safety Report 7093673-9 (Version None)
Quarter: 2010Q4

REPORT INFORMATION
  Report Type: 
  Country: None (occurrence: None)
  Receive Date: 20101110
  Receipt Date: 20090305
  Transmission Date: 20110411
  Serious: Yes (Death)
  Sender: FDA-Public Use
  Company Number: CA-ROCHE-739121

PATIENT

DRUGS (1)
  1. XELODA [Suspect]
     Route: 065

REACTIONS (1)
  - DIARRHOEA [None]
